FAERS Safety Report 16681888 (Version 8)
Quarter: 2020Q3

REPORT INFORMATION
  Report Type: Other
  Country: FR (occurrence: FR)
  Receive Date: 20190808
  Receipt Date: 20200817
  Transmission Date: 20201102
  Serious: Yes (Hospitalization)
  Sender: FDA-Public Use
  Company Number: FR-ROCHE-2371259

PATIENT
  Age: 57 Year
  Sex: Male
  Weight: 66 kg

DRUGS (27)
  1. MOVICOL [Concomitant]
     Active Substance: POLYETHYLENE GLYCOL 3350\POTASSIUM CHLORIDE\SODIUM BICARBONATE\SODIUM CHLORIDE
     Indication: CONSTIPATION
     Dates: start: 20190801, end: 20190913
  2. ALPRAZOLAM. [Concomitant]
     Active Substance: ALPRAZOLAM
     Indication: ANXIETY
     Dates: start: 20190905, end: 20190910
  3. ATEZOLIZUMAB. [Suspect]
     Active Substance: ATEZOLIZUMAB
     Route: 041
     Dates: start: 20190809
  4. ROPIVACAINE HYDROCHLORIDE MONOHYDRATE [Concomitant]
     Active Substance: ROPIVACAINE HYDROCHLORIDE
     Indication: CERVICOBRACHIAL SYNDROME
  5. AMITRIPTYLINE [Concomitant]
     Active Substance: AMITRIPTYLINE
     Indication: ANXIETY
     Dates: end: 20190913
  6. TERCIAN [Concomitant]
     Active Substance: CYAMEMAZINE
     Indication: ANXIETY
     Dates: start: 20190909, end: 20190910
  7. SALBUTAMOL [Concomitant]
     Active Substance: ALBUTEROL
     Indication: DYSPNOEA
     Dates: start: 20190905, end: 20190915
  8. ACIDE ZOLEDRONIQUE [Concomitant]
     Active Substance: ZOLEDRONIC ACID
     Indication: METASTASES TO BONE
     Dates: start: 20190905
  9. GABAPENTINE [Concomitant]
     Active Substance: GABAPENTIN
     Indication: CERVICOBRACHIAL SYNDROME
  10. METHYLPREDNISOLONE. [Concomitant]
     Active Substance: METHYLPREDNISOLONE
     Dates: start: 20190729, end: 20190731
  11. ZICONOTIDE ACETATE [Concomitant]
     Active Substance: ZICONOTIDE ACETATE
     Indication: CERVICOBRACHIAL SYNDROME
  12. FUROSEMIDE. [Concomitant]
     Active Substance: FUROSEMIDE
     Dates: start: 20190731, end: 20190819
  13. PARACETAMOL [Concomitant]
     Active Substance: ACETAMINOPHEN
     Indication: MUSCULOSKELETAL CHEST PAIN
     Dates: end: 20190913
  14. HYDROCORTISONE. [Concomitant]
     Active Substance: HYDROCORTISONE
     Indication: CORTISOL DECREASED
     Dates: start: 20190808
  15. MIDAZOLAM. [Concomitant]
     Active Substance: MIDAZOLAM
     Indication: CONFUSIONAL STATE
     Dates: start: 20190908, end: 20190917
  16. CHLORPROMAZINE. [Concomitant]
     Active Substance: CHLORPROMAZINE
     Indication: CONFUSIONAL STATE
     Dates: start: 20180910
  17. ATEZOLIZUMAB. [Suspect]
     Active Substance: ATEZOLIZUMAB
     Indication: NON-SMALL CELL LUNG CANCER
     Route: 042
     Dates: start: 20190628
  18. MORPHINE [Concomitant]
     Active Substance: MORPHINE
     Indication: CERVICOBRACHIAL SYNDROME
  19. ENOXAPARIN SODIUM. [Concomitant]
     Active Substance: ENOXAPARIN SODIUM
     Dates: start: 20190905, end: 20190913
  20. SCOBUREN [Concomitant]
     Active Substance: BUTYLSCOPOLAMINE
     Dates: start: 20190912, end: 20190918
  21. POLYIONIQUE G5 [Concomitant]
     Active Substance: DEXTROSE\POTASSIUM CHLORIDE\SODIUM CHLORIDE
     Dates: start: 20190904, end: 20190915
  22. ATEZOLIZUMAB. [Suspect]
     Active Substance: ATEZOLIZUMAB
     Route: 041
     Dates: start: 20190719
  23. PARACETAMOL [Concomitant]
     Active Substance: ACETAMINOPHEN
     Indication: CERVICOBRACHIAL SYNDROME
  24. RISPERIDONE. [Concomitant]
     Active Substance: RISPERIDONE
     Indication: CONFUSIONAL STATE
     Dates: start: 20190906
  25. METHYLPREDNISOLONE. [Concomitant]
     Active Substance: METHYLPREDNISOLONE
     Dates: start: 20190905, end: 20190917
  26. XATRAL [Concomitant]
     Active Substance: ALFUZOSIN
     Dates: start: 20190729, end: 20190913
  27. LEVOTHYROX [Concomitant]
     Active Substance: LEVOTHYROXINE
     Indication: HYPOTHYROIDISM
     Dates: start: 20190807, end: 20190913

REACTIONS (3)
  - Hypothyroidism [Recovered/Resolved]
  - Syncope [Recovered/Resolved]
  - Confusional state [Not Recovered/Not Resolved]

NARRATIVE: CASE EVENT DATE: 20190728
